FAERS Safety Report 5134460-8 (Version None)
Quarter: 2006Q4

REPORT INFORMATION
  Report Type: 
  Country: None (occurrence: None)
  Receive Date: 20061025
  Receipt Date: 20061018
  Transmission Date: 20070319
  Serious: Yes (Other)
  Sender: FDA-Public Use
  Company Number: US-AVENTIS-200618662US

PATIENT
  Age: 61 Year
  Sex: Female

DRUGS (8)
  1. ALLEGRA-D 12 HOUR [Suspect]
     Indication: HYPERSENSITIVITY
     Dosage: DOSE: UNK
  2. WELLBUTRIN [Suspect]
     Indication: DEPRESSION
     Route: 048
  3. CLARINEX [Suspect]
     Indication: HYPERSENSITIVITY
     Route: 048
     Dates: start: 20061009
  4. ANASTROZOLE [Concomitant]
     Dosage: DOSE: UNK
  5. OMEPRAZOLE [Concomitant]
     Dosage: DOSE: UNK
  6. SIMVASTATIN [Concomitant]
     Dosage: DOSE: UNK
  7. ZOLPIDEM TARTRATE [Concomitant]
  8. CLONAZEPAM [Concomitant]
     Dosage: DOSE: UNK

REACTIONS (6)
  - DRUG INTERACTION [None]
  - DRY MOUTH [None]
  - DYSKINESIA [None]
  - GAIT DISTURBANCE [None]
  - LIP DRY [None]
  - TARDIVE DYSKINESIA [None]
